FAERS Safety Report 7462423-6 (Version None)
Quarter: 2011Q2

REPORT INFORMATION
  Report Type: 
  Country: None (occurrence: None)
  Receive Date: 20110506
  Receipt Date: 20110427
  Transmission Date: 20111010
  Serious: Yes (Hospitalization, Other)
  Sender: FDA-Public Use
  Company Number: FR-SANOFI-AVENTIS-2011SA027328

PATIENT
  Age: 69 Year
  Sex: Female

DRUGS (16)
  1. GLUCOPHAGE [Suspect]
     Indication: TYPE 2 DIABETES MELLITUS
     Route: 048
     Dates: end: 20110118
  2. ACTONEL [Concomitant]
     Route: 065
  3. KETOPROFEN [Suspect]
     Indication: BACK PAIN
     Route: 048
     Dates: start: 20110110, end: 20110118
  4. FENOFIBRATE [Suspect]
     Route: 048
     Dates: end: 20110118
  5. LEVOTHYROX [Concomitant]
     Route: 065
  6. LEXOMIL [Concomitant]
     Route: 065
  7. CACIT D3 [Concomitant]
     Route: 065
  8. INSULIN DETEMIR [Concomitant]
     Indication: TYPE 2 DIABETES MELLITUS
     Route: 065
  9. DOMPERIDONE [Concomitant]
     Route: 065
  10. TEMAZEPAM [Suspect]
     Indication: BACK PAIN
     Route: 048
     Dates: start: 20110110, end: 20110118
  11. PARIET [Concomitant]
     Route: 065
  12. LOVENOX [Suspect]
     Route: 058
     Dates: start: 20110111, end: 20110118
  13. DIAMICRON [Suspect]
     Indication: TYPE 2 DIABETES MELLITUS
     Route: 048
     Dates: end: 20110119
  14. TRAMADOL HCL [Suspect]
     Indication: BACK PAIN
     Route: 048
     Dates: start: 20110111, end: 20110118
  15. ACETAMINOPHEN [Suspect]
     Indication: BACK PAIN
     Route: 048
     Dates: start: 20110110, end: 20110118
  16. SERETIDE [Concomitant]
     Route: 065

REACTIONS (3)
  - GENERAL PHYSICAL HEALTH DETERIORATION [None]
  - RENAL FAILURE ACUTE [None]
  - SOMNOLENCE [None]
